FAERS Safety Report 4991326-1 (Version None)
Quarter: 2006Q2

REPORT INFORMATION
  Report Type: 
  Country: None (occurrence: None)
  Receive Date: 20060428
  Receipt Date: 20060206
  Transmission Date: 20061013
  Serious: Yes (Other)
  Sender: FDA-Public Use
  Company Number: T200600238

PATIENT
  Age: 32 Year
  Sex: Male

DRUGS (1)
  1. METHADOSE [Suspect]
     Dosage: 80 MG, QD, ORAL
     Route: 048

REACTIONS (1)
  - ELECTROCARDIOGRAM QT PROLONGED [None]
